FAERS Safety Report 7920460-9 (Version None)
Quarter: 2011Q4

REPORT INFORMATION
  Report Type: 
  Country: None (occurrence: None)
  Receive Date: 20111117
  Receipt Date: 20111109
  Transmission Date: 20120403
  Serious: Yes (Hospitalization, Other)
  Sender: FDA-Public Use
  Company Number: PHHY2011FR098858

PATIENT
  Sex: Female

DRUGS (4)
  1. VOLTAREN [Suspect]
     Dosage: 75 MG
     Dates: start: 20110920
  2. GLUCOPHAGE [Concomitant]
     Dosage: 10 MG, UNK
  3. SOTALOL HCL [Concomitant]
     Dosage: 1 DF, QD
  4. ATORVASTATIN CALCIUM [Concomitant]
     Dosage: 10 MG, UNK

REACTIONS (10)
  - LEUKOCYTOSIS [None]
  - ESCHERICHIA INFECTION [None]
  - C-REACTIVE PROTEIN INCREASED [None]
  - TACHYARRHYTHMIA [None]
  - BLOOD PRESSURE SYSTOLIC INCREASED [None]
  - MEMORY IMPAIRMENT [None]
  - BLOOD CREATININE INCREASED [None]
  - ATRIAL FIBRILLATION [None]
  - CONFUSIONAL STATE [None]
  - PYELONEPHRITIS [None]
